FAERS Safety Report 23474957 (Version 1)
Quarter: 2024Q1

REPORT INFORMATION
  Report Type: Report from Study
  Country: US (occurrence: US)
  Receive Date: 20240204
  Receipt Date: 20240204
  Transmission Date: 20240410
  Serious: Yes (Other)
  Sender: FDA-Public Use
  Company Number: US-EXELIXIS-CABO-23069151

PATIENT
  Sex: Male

DRUGS (2)
  1. CABOMETYX [Suspect]
     Active Substance: CABOZANTINIB S-MALATE
     Indication: Renal cancer
     Dosage: 40 MG, QD
     Route: 048
  2. ACETAMINOPHEN [Suspect]
     Active Substance: ACETAMINOPHEN
     Indication: Pain
     Dosage: 300 MG, PRN

REACTIONS (8)
  - Metastases to bone [Unknown]
  - Decreased appetite [Unknown]
  - Constipation [Unknown]
  - Pain [Recovered/Resolved]
  - Blood pressure fluctuation [Unknown]
  - Somnolence [Unknown]
  - Gait inability [Unknown]
  - Fatigue [Unknown]
